FAERS Safety Report 6581758-2 (Version None)
Quarter: 2010Q1

REPORT INFORMATION
  Report Type: 
  Country: None (occurrence: None)
  Receive Date: 20100215
  Receipt Date: 20100204
  Transmission Date: 20100710
  Serious: Yes (Other)
  Sender: FDA-Public Use
  Company Number: PHHY2009DE36978

PATIENT
  Sex: Male

DRUGS (3)
  1. LAMISIL [Suspect]
     Indication: ONYCHOMYCOSIS
     Dosage: UNK
     Route: 048
     Dates: start: 20090728, end: 20090815
  2. L-THYROXIN [Concomitant]
     Dosage: UNK
  3. ARTELAC [Concomitant]
     Dosage: 1 DROP PER DAY

REACTIONS (7)
  - GLOSSITIS [None]
  - GLOSSODYNIA [None]
  - HYPOPHAGIA [None]
  - SPEECH DISORDER [None]
  - STOMATITIS [None]
  - TONGUE COATED [None]
  - TONGUE PARALYSIS [None]
